FAERS Safety Report 6171051-4 (Version None)
Quarter: 2009Q2

REPORT INFORMATION
  Report Type: 
  Country: None (occurrence: None)
  Receive Date: 20090429
  Receipt Date: 20090424
  Transmission Date: 20091009
  Serious: Yes (Hospitalization, Other)
  Sender: FDA-Public Use
  Company Number: US-ELI_LILLY_AND_COMPANY-US200904005878

PATIENT
  Age: 87 Year
  Sex: Female

DRUGS (2)
  1. FORTEO [Suspect]
     Dates: start: 20060101, end: 20060101
  2. FORTEO [Suspect]
     Dates: start: 20081101

REACTIONS (3)
  - ABDOMINAL PAIN [None]
  - FALL [None]
  - PELVIC FRACTURE [None]
